FAERS Safety Report 8687704 (Version 4)
Quarter: 2013Q2

REPORT INFORMATION
  Report Type: Report from Study
  Country: US (occurrence: US)
  Receive Date: 20120727
  Receipt Date: 20130507
  Transmission Date: 20140414
  Serious: Yes (Other)
  Sender: FDA-Public Use
  Company Number: US-ABBOTT-12P-163-0958155-00

PATIENT
  Age: 23 Year
  Sex: Female

DRUGS (5)
  1. HUMIRA [Suspect]
     Indication: PSORIASIS
     Route: 058
     Dates: start: 20120717, end: 20120717
  2. HUMIRA [Suspect]
     Dosage: DAY 8
     Dates: start: 20120725, end: 20120725
  3. HUMIRA [Suspect]
     Route: 058
  4. IRON [Concomitant]
     Indication: PRODUCT USED FOR UNKNOWN INDICATION
     Route: 048
  5. PRENATAL VITAMINS [Concomitant]
     Indication: PRODUCT USED FOR UNKNOWN INDICATION
     Route: 048

REACTIONS (5)
  - Placenta praevia [Unknown]
  - Vaginal haemorrhage [Unknown]
  - Abortion spontaneous [Unknown]
  - Haemoptysis [Recovered/Resolved]
  - Injection site bruising [Not Recovered/Not Resolved]
